FAERS Safety Report 11271370 (Version 3)
Quarter: 2021Q2

REPORT INFORMATION
  Report Type: Report from Study
  Country: DE (occurrence: DE)
  Receive Date: 20150714
  Receipt Date: 20210617
  Transmission Date: 20210716
  Serious: Yes (Hospitalization, Other)
  Sender: FDA-Public Use
  Company Number: DE-BAXALTA-2015BLT000144

PATIENT
  Age: 31 Year
  Weight: 74.83 kg

DRUGS (14)
  1. ADVATE [Suspect]
     Active Substance: ANTIHEMOPHILIC FACTOR, HUMAN RECOMBINANT
     Indication: FACTOR VIII DEFICIENCY
     Dosage: 2000 IU, 2X A WEEK
     Route: 042
     Dates: start: 20150319, end: 20150331
  2. ADVATE [Suspect]
     Active Substance: ANTIHEMOPHILIC FACTOR, HUMAN RECOMBINANT
     Dosage: 2000 INTERNATIONAL UNIT, 2/WEEK
     Route: 065
     Dates: start: 20080201
  3. ADVATE [Suspect]
     Active Substance: ANTIHEMOPHILIC FACTOR, HUMAN RECOMBINANT
     Indication: FACTOR VIII DEFICIENCY
     Dosage: 2000 IU, 2X A WEEK
     Route: 042
     Dates: start: 20150319, end: 20150331
  4. ADVATE [Suspect]
     Active Substance: ANTIHEMOPHILIC FACTOR, HUMAN RECOMBINANT
     Indication: FACTOR VIII DEFICIENCY
     Dosage: 2000 IU, 2X A WEEK
     Route: 042
     Dates: start: 20150319, end: 20150331
  5. ADVATE [Suspect]
     Active Substance: ANTIHEMOPHILIC FACTOR, HUMAN RECOMBINANT
     Dosage: 2000 INTERNATIONAL UNIT, 2/WEEK
     Route: 065
     Dates: start: 20080201
  6. ACETYLCYSTEINE. [Concomitant]
     Active Substance: ACETYLCYSTEINE
     Dosage: 200 MILLIGRAM, TID
     Route: 048
     Dates: start: 20111007, end: 20111017
  7. ADVATE [Suspect]
     Active Substance: ANTIHEMOPHILIC FACTOR, HUMAN RECOMBINANT
     Indication: PROPHYLAXIS
     Dosage: 2000 IU, 2X A WEEK
     Route: 042
     Dates: start: 20080201
  8. IBUPROFEN. [Concomitant]
     Active Substance: IBUPROFEN
     Dosage: 400 MILLIGRAM, 3 TO 4 DAYS
     Route: 048
     Dates: start: 20131118, end: 20131123
  9. ADVATE [Suspect]
     Active Substance: ANTIHEMOPHILIC FACTOR, HUMAN RECOMBINANT
     Dosage: 2000 INTERNATIONAL UNIT, 2/WEEK
     Route: 065
     Dates: start: 20080201
  10. CELEBREX [Concomitant]
     Active Substance: CELECOXIB
     Indication: ANALGESIC THERAPY
     Dosage: 100 MG, 1X A DAY
     Route: 048
     Dates: start: 20090201
  11. NASIVIN CLASSIC [Concomitant]
     Dosage: UNK UNK, TID
     Route: 045
     Dates: start: 20111007
  12. ADVATE [Suspect]
     Active Substance: ANTIHEMOPHILIC FACTOR, HUMAN RECOMBINANT
     Indication: PROPHYLAXIS
     Dosage: 2000 IU, 2X A WEEK
     Route: 042
     Dates: start: 20080201
  13. ADVATE [Suspect]
     Active Substance: ANTIHEMOPHILIC FACTOR, HUMAN RECOMBINANT
     Indication: PROPHYLAXIS
     Dosage: 2000 IU, 2X A WEEK
     Route: 042
     Dates: start: 20080201
  14. GRIPPOSTAD C [Concomitant]
     Active Substance: ACETAMINOPHEN\ASCORBIC ACID\CAFFEINE\CHLORPHENIRAMINE MALEATE
     Dosage: 400 MILLIGRAM, 3 TO 4 TIMES A DAY
     Route: 048
     Dates: start: 20111007

REACTIONS (2)
  - Haemophilic arthropathy [Recovered/Resolved with Sequelae]
  - Disease progression [Recovered/Resolved with Sequelae]

NARRATIVE: CASE EVENT DATE: 20141203
